FAERS Safety Report 14101395 (Version 1)
Quarter: 2017Q4

REPORT INFORMATION
  Report Type: Spontaneous
  Country: US (occurrence: US)
  Receive Date: 20171017
  Receipt Date: 20171017
  Transmission Date: 20180321
  Serious: No
  Sender: FDA-Public Use
  Company Number: None

PATIENT
  Age: 75 Year
  Sex: Female
  Weight: 51.75 kg

DRUGS (9)
  1. LEVOFLOXACIN. [Suspect]
     Active Substance: LEVOFLOXACIN
     Indication: BACTERIAL INFECTION
     Route: 048
  2. METOPROLOL. [Concomitant]
     Active Substance: METOPROLOL
  3. AMLODIPINE [Concomitant]
     Active Substance: AMLODIPINE BESYLATE
  4. PRAVASTATIN. [Concomitant]
     Active Substance: PRAVASTATIN
  5. PANTOPROLOL [Concomitant]
  6. RENAGEL [Concomitant]
     Active Substance: SEVELAMER HYDROCHLORIDE
  7. MINOXIDIL. [Concomitant]
     Active Substance: MINOXIDIL
  8. VITAMIN C [Concomitant]
     Active Substance: ASCORBIC ACID
  9. TUMS [Concomitant]
     Active Substance: CALCIUM CARBONATE

REACTIONS (3)
  - Hallucination [None]
  - Dyspnoea [None]
  - Formication [None]

NARRATIVE: CASE EVENT DATE: 20150715
